FAERS Safety Report 4695104-2 (Version None)
Quarter: 2005Q2

REPORT INFORMATION
  Report Type: 
  Country: None (occurrence: None)
  Receive Date: 20050620
  Receipt Date: 20041122
  Transmission Date: 20051028
  Serious: Yes (Death, Life-Threatening, Hospitalization, Other)
  Sender: FDA-Public Use
  Company Number: DE-MERCK-0411DEU00460

PATIENT
  Age: 60 Year
  Sex: Male
  Weight: 100 kg

DRUGS (14)
  1. VIOXX [Suspect]
     Indication: MUSCULOSKELETAL PAIN
     Route: 048
     Dates: start: 20000101, end: 20020101
  2. VIOXX [Suspect]
     Route: 048
     Dates: start: 20020502, end: 20020101
  3. VIOXX [Suspect]
     Indication: OSTEOARTHRITIS
     Route: 048
     Dates: start: 20000101, end: 20020101
  4. VIOXX [Suspect]
     Route: 048
     Dates: start: 20020502, end: 20020101
  5. HYDROCHLOROTHIAZIDE AND VALSARTAN [Concomitant]
     Route: 065
     Dates: start: 19981001
  6. NITRENDIPINE [Concomitant]
     Route: 065
  7. DILTIAZEM HYDROCHLORIDE [Concomitant]
     Route: 065
     Dates: start: 20020201
  8. BENAZEPRIL HYDROCHLORIDE AND HYDROCHLOROTHIAZIDE [Concomitant]
     Route: 065
     Dates: start: 20020201
  9. MAGNESIUM (UNSPECIFIED) [Concomitant]
     Route: 065
  10. TORSEMIDE [Concomitant]
     Route: 065
     Dates: start: 20020501
  11. ESOMEPRAZOLE MAGNESIUM [Concomitant]
     Route: 065
  12. INSULIN HUMAN, ISOPHANE [Concomitant]
     Route: 065
     Dates: start: 19941001
  13. INDOMETHACIN [Concomitant]
     Route: 065
  14. DEXIBUPROFEN [Concomitant]
     Route: 065

REACTIONS (5)
  - ATRIAL FIBRILLATION [None]
  - HYPERTENSIVE CRISIS [None]
  - HYPERTENSIVE HEART DISEASE [None]
  - MYOCARDIAL INFARCTION [None]
  - TACHYARRHYTHMIA [None]
